FAERS Safety Report 15806511 (Version 1)
Quarter: 2019Q1

REPORT INFORMATION
  Report Type: Report from Study
  Country: US (occurrence: US)
  Receive Date: 20190110
  Receipt Date: 20190110
  Transmission Date: 20190417
  Serious: Yes (Hospitalization, Other)
  Sender: FDA-Public Use
  Company Number: US-SAKK-2018SA227527AA

PATIENT
  Age: 49 Year
  Sex: Female

DRUGS (1)
  1. IMIGLUCERASE [Suspect]
     Active Substance: IMIGLUCERASE
     Indication: GAUCHER^S DISEASE
     Dosage: 3600 Q2
     Route: 041
     Dates: start: 20060919

REACTIONS (5)
  - Bradycardia [Recovering/Resolving]
  - Contusion [Recovering/Resolving]
  - Migraine [Recovering/Resolving]
  - Epistaxis [Recovering/Resolving]
  - Influenza [Recovering/Resolving]

NARRATIVE: CASE EVENT DATE: 20180809
